FAERS Safety Report 5937096-1 (Version None)
Quarter: 2008Q4

REPORT INFORMATION
  Report Type: 
  Country: None (occurrence: None)
  Receive Date: 20081031
  Receipt Date: 20081021
  Transmission Date: 20090506
  Serious: Yes (Hospitalization, Other)
  Sender: FDA-Public Use
  Company Number: PHHY2008JP24135

PATIENT
  Age: 70 Year
  Sex: Male

DRUGS (1)
  1. GLEEVEC [Suspect]
     Dosage: UNK

REACTIONS (8)
  - EYELID DISORDER [None]
  - FACE OEDEMA [None]
  - ILEOSTOMY [None]
  - ILEUS PARALYTIC [None]
  - INTESTINAL ANASTOMOSIS [None]
  - MALIGNANT NEOPLASM PROGRESSION [None]
  - RESECTION OF RECTUM [None]
  - WOUND INFECTION [None]
